FAERS Safety Report 8503632-4 (Version None)
Quarter: 2012Q3

REPORT INFORMATION
  Report Type: 
  Country: None (occurrence: None)
  Receive Date: 20120711
  Receipt Date: 20120626
  Transmission Date: 20120928
  Serious: Yes (Other)
  Sender: FDA-Public Use
  Company Number: GB-WATSON-2012-11498

PATIENT
  Age: 61 Year
  Sex: Female

DRUGS (2)
  1. FLOXACILLIN SODIUM [Suspect]
     Indication: GASTROENTERITIS
     Dosage: UNKNOWN
     Route: 065
  2. CITALOPRAM HYDROBROMIDE [Suspect]
     Indication: DEPRESSION
     Dosage: 10 MG, DAILY
     Route: 065
     Dates: end: 20120601

REACTIONS (9)
  - LIVER FUNCTION TEST ABNORMAL [None]
  - SOMNOLENCE [None]
  - FLATULENCE [None]
  - IMMUNOGLOBULINS INCREASED [None]
  - DIARRHOEA [None]
  - MEMORY IMPAIRMENT [None]
  - HAEMATURIA [None]
  - HEADACHE [None]
  - URINARY TRACT INFECTION [None]
